FAERS Safety Report 5984282-0 (Version None)
Quarter: 2008Q4

REPORT INFORMATION
  Report Type: 
  Country: None (occurrence: None)
  Receive Date: 20081208
  Receipt Date: 20081202
  Transmission Date: 20090506
  Serious: Yes (Hospitalization, Disabling)
  Sender: FDA-Public Use
  Company Number: JP-ASTRAZENECA-2008AP05870

PATIENT
  Age: 64 Year
  Sex: Male
  Weight: 45 kg

DRUGS (15)
  1. IRESSA [Suspect]
     Indication: LUNG ADENOCARCINOMA
     Route: 048
     Dates: start: 20080625
  2. MYSLEE [Concomitant]
     Indication: INSOMNIA
     Route: 048
     Dates: start: 20080625
  3. LENDORMIN [Concomitant]
     Indication: INSOMNIA
     Route: 048
     Dates: start: 20080625
  4. MAGNESIUM OXIDE [Concomitant]
     Indication: CONSTIPATION
     Route: 048
     Dates: start: 20080629
  5. ENTERONON [Concomitant]
     Indication: GASTRITIS
     Route: 048
     Dates: start: 20080701
  6. HACHIAZULE [Concomitant]
     Indication: STOMATITIS
     Dosage: NUMBER OF SEPARATE DOSAGES UNKNOWN
     Route: 049
     Dates: start: 20080703
  7. XYLOCAINE [Concomitant]
     Indication: STOMATITIS
     Dosage: NUMBER OF SEPARATE DOSAGES UNKNOWN
     Route: 049
     Dates: start: 20080703
  8. WATER,PURIFIED [Concomitant]
     Indication: STOMATITIS
     Dosage: NUMBER OF SEPARATE DOSAGES UNKNOWN
     Route: 049
     Dates: start: 20080703
  9. OMEPRAZOLE [Concomitant]
     Route: 048
     Dates: start: 20080625, end: 20080724
  10. FOIPAN [Concomitant]
     Indication: PANCREATITIS
     Route: 048
     Dates: start: 20080625
  11. FLUNASE [Concomitant]
     Dosage: DOSE UNKNOWN
     Route: 045
     Dates: start: 20080704
  12. CRAVIT [Concomitant]
     Indication: PERITONITIS
     Route: 048
     Dates: start: 20080707, end: 20080712
  13. FLOMOX [Concomitant]
     Indication: PERITONITIS
     Route: 048
     Dates: start: 20080710, end: 20080716
  14. BLADDERON [Concomitant]
     Indication: POLLAKIURIA
     Route: 048
     Dates: start: 20080710
  15. GASTER D [Concomitant]
     Indication: GASTRITIS
     Route: 048
     Dates: start: 20080724

REACTIONS (3)
  - CYSTITIS [None]
  - DIARRHOEA [None]
  - STOMATITIS [None]
